FAERS Safety Report 16179300 (Version 1)
Quarter: 2019Q2

REPORT INFORMATION
  Report Type: Spontaneous
  Country: US (occurrence: US)
  Receive Date: 20190307
  Receipt Date: 20190307
  Transmission Date: 20190711
  Serious: No
  Sender: FDA-Public Use
  Company Number: None

PATIENT
  Age: 60 Year
  Sex: Male
  Weight: 102.06 kg

DRUGS (1)
  1. TREMFYA [Suspect]
     Active Substance: GUSELKUMAB
     Indication: PSORIASIS
     Dosage: ?          OTHER FREQUENCY:WK 4 AS DIR;?
     Route: 058
     Dates: start: 201804

REACTIONS (4)
  - Condition aggravated [None]
  - Pain [None]
  - Insurance issue [None]
  - Therapy cessation [None]
